FAERS Safety Report 6930990-4 (Version None)
Quarter: 2010Q3

REPORT INFORMATION
  Report Type: 
  Country: None (occurrence: None)
  Receive Date: 20100818
  Receipt Date: 20100810
  Transmission Date: 20110219
  Serious: Yes (Other)
  Sender: FDA-Public Use
  Company Number: SE-RB-014099-10

PATIENT
  Age: 31 Year
  Sex: Male

DRUGS (3)
  1. SUBOXONE [Suspect]
     Dosage: DOSING DETAILS UNKNOWN.
     Route: 065
  2. SUBOXONE [Suspect]
     Indication: DRUG ABUSE
     Dosage: UNIT DOSE UNKNOWN.
     Route: 060
  3. CLONAZEPAM [Concomitant]
     Indication: PRODUCT USED FOR UNKNOWN INDICATION
     Route: 065

REACTIONS (2)
  - HALLUCINATION, TACTILE [None]
  - OVERDOSE [None]
